FAERS Safety Report 4333542-8 (Version None)
Quarter: 2004Q1

REPORT INFORMATION
  Report Type: 
  Country: None (occurrence: None)
  Receive Date: 20040329
  Receipt Date: 20031219
  Transmission Date: 20041129
  Serious: No
  Sender: FDA-Public Use
  Company Number: 03P-163-0245169-00

PATIENT
  Age: 72 Year
  Sex: Female
  Weight: 54.4316 kg

DRUGS (4)
  1. HUMIRA [Suspect]
     Indication: RHEUMATOID ARTHRITIS
     Dosage: 40 MG, 1 IN 2 WK, SUBCUTANEOUS
     Route: 058
     Dates: start: 20030701
  2. RALOXIFENE HCL [Concomitant]
  3. OMEPRAZOLE [Concomitant]
  4. FLUTICASONE PROPIONATE [Concomitant]

REACTIONS (3)
  - ARTHRALGIA [None]
  - HERPES ZOSTER [None]
  - PNEUMONIA [None]
